FAERS Safety Report 21052200 (Version 2)
Quarter: 2022Q3

REPORT INFORMATION
  Report Type: Report from Study
  Country: MX (occurrence: MX)
  Receive Date: 20220707
  Receipt Date: 20220811
  Transmission Date: 20221027
  Serious: Yes (Death, Hospitalization, Other)
  Sender: FDA-Public Use
  Company Number: MX-NOVARTISPH-NVSC2022MX135989

PATIENT
  Age: 77 Year
  Sex: Female
  Weight: 94 kg

DRUGS (2)
  1. EXELON [Suspect]
     Active Substance: RIVASTIGMINE TARTRATE
     Indication: Amnesia
     Dosage: 9.5 MG, QD (PATCH 10 (CM2), 18 MG RIVASTIGMINE BASE)
     Route: 062
     Dates: start: 2020
  2. GLUCOSAMINE SULFATE [Suspect]
     Active Substance: GLUCOSAMINE SULFATE
     Indication: Product used for unknown indication
     Dosage: UNK
     Route: 065

REACTIONS (4)
  - Myocardial infarction [Fatal]
  - Infarction [Fatal]
  - Colitis [Fatal]
  - Pancreatic carcinoma [Fatal]

NARRATIVE: CASE EVENT DATE: 20220601
